FAERS Safety Report 9697007 (Version 2)
Quarter: 2013Q4

REPORT INFORMATION
  Report Type: Spontaneous
  Country: JP (occurrence: JP)
  Receive Date: 20131119
  Receipt Date: 20131211
  Transmission Date: 20140711
  Serious: No
  Sender: FDA-Public Use
  Company Number: PHHY2013JP131120

PATIENT
  Age: 80 Year
  Sex: Female

DRUGS (1)
  1. LAMISIL [Suspect]
     Dosage: UNK UKN, UNK
     Route: 047
     Dates: start: 20131110, end: 20131112

REACTIONS (4)
  - Eye pain [Recovered/Resolved]
  - Eye pruritus [Recovered/Resolved]
  - Incorrect route of drug administration [Recovered/Resolved]
  - Expired drug administered [Unknown]
